FAERS Safety Report 6942087-8 (Version None)
Quarter: 2010Q3

REPORT INFORMATION
  Report Type: 
  Country: None (occurrence: None)
  Receive Date: 20100826
  Receipt Date: 20100813
  Transmission Date: 20110219
  Serious: Yes (Hospitalization)
  Sender: FDA-Public Use
  Company Number: RU-ELI_LILLY_AND_COMPANY-RU201008005060

PATIENT
  Sex: Male

DRUGS (11)
  1. GEMCITABINE HCL [Suspect]
     Indication: PANCREATIC CARCINOMA
     Dosage: 1000 MG/M2 (1910 MG), UNK
     Route: 065
     Dates: start: 20100504
  2. GEMCITABINE HCL [Suspect]
     Dosage: 1528 MG, UNK
     Dates: start: 20100803
  3. PANCREATIN [Concomitant]
     Indication: CONSTIPATION
     Dosage: UNK, UNK
     Route: 048
     Dates: start: 20100101
  4. CARDIOMAGNYL [Concomitant]
     Indication: MYOCARDIAL ISCHAEMIA
     Dosage: UNK, UNK
     Route: 048
     Dates: start: 20000101
  5. SIMETHICONE [Concomitant]
     Indication: CONSTIPATION
     Dosage: UNK, UNK
     Route: 048
     Dates: start: 20100101
  6. PENTALGIN [Concomitant]
     Indication: ABDOMINAL PAIN
     Dosage: UNK, UNK
     Route: 048
     Dates: start: 20100101
  7. PROTAPHANE                         /00030513/ [Concomitant]
     Indication: DIABETES MELLITUS
     Dosage: UNK, UNK
     Route: 058
     Dates: start: 20020101
  8. ACTRAPID /00646001/ [Concomitant]
     Indication: DIABETES MELLITUS
     Dosage: UNK, UNK
     Route: 058
     Dates: start: 20020101
  9. ONDANSETRON [Concomitant]
     Indication: PROPHYLAXIS OF NAUSEA AND VOMITING
     Dosage: UNK, UNK
     Route: 042
     Dates: start: 20100504
  10. SODIUM CHLORIDE [Concomitant]
     Indication: DEHYDRATION
     Dosage: UNK, UNK
     Route: 042
     Dates: start: 20100504
  11. PRESTARIUM [Concomitant]
     Indication: MYOCARDIAL ISCHAEMIA
     Route: 048
     Dates: start: 20000101

REACTIONS (1)
  - GASTRIC HAEMORRHAGE [None]
